FAERS Safety Report 17355984 (Version 1)
Quarter: 2020Q1

REPORT INFORMATION
  Report Type: Spontaneous
  Country: US (occurrence: US)
  Receive Date: 20200116
  Receipt Date: 20200116
  Transmission Date: 20200409
  Serious: No
  Sender: FDA-Public Use
  Company Number: None

PATIENT
  Age: 63 Year
  Sex: Female

DRUGS (1)
  1. REVLIMID [Suspect]
     Active Substance: LENALIDOMIDE
     Indication: PLASMA CELL MYELOMA
     Route: 048
     Dates: start: 20191216, end: 20200113

REACTIONS (6)
  - Dyspnoea exertional [None]
  - Constipation [None]
  - Fatigue [None]
  - Vision blurred [None]
  - Dehydration [None]
  - Myalgia [None]

NARRATIVE: CASE EVENT DATE: 20200113
